FAERS Safety Report 5580216-1 (Version None)
Quarter: 2008Q1

REPORT INFORMATION
  Report Type: 
  Country: None (occurrence: None)
  Receive Date: 20080103
  Receipt Date: 20071226
  Transmission Date: 20080703
  Serious: Yes (Other)
  Sender: FDA-Public Use
  Company Number: JP-BRISTOL-MYERS SQUIBB COMPANY-14028294

PATIENT
  Age: 35 Year
  Sex: Female

DRUGS (5)
  1. ENDOXAN [Suspect]
     Indication: DIFFUSE LARGE B-CELL LYMPHOMA STAGE II
     Route: 065
     Dates: start: 20061201, end: 20070401
  2. DOXORUBICIN HCL [Suspect]
     Indication: DIFFUSE LARGE B-CELL LYMPHOMA STAGE II
     Route: 065
     Dates: start: 20061201, end: 20070401
  3. VINCRISTINE [Suspect]
     Indication: DIFFUSE LARGE B-CELL LYMPHOMA STAGE II
     Route: 065
     Dates: start: 20061201, end: 20070401
  4. RITUXIMAB [Suspect]
     Indication: DIFFUSE LARGE B-CELL LYMPHOMA STAGE II
     Route: 065
     Dates: start: 20061201, end: 20070401
  5. PREDONINE [Concomitant]
     Dates: start: 20061201, end: 20070401

REACTIONS (3)
  - SEPTIC SHOCK [None]
  - UPPER RESPIRATORY TRACT INFECTION [None]
  - WHITE BLOOD CELL COUNT DECREASED [None]
